FAERS Safety Report 24615659 (Version 2)
Quarter: 2024Q4

REPORT INFORMATION
  Report Type: Spontaneous
  Country: AR (occurrence: AR)
  Receive Date: 20241113
  Receipt Date: 20241210
  Transmission Date: 20250115
  Serious: No
  Sender: PFIZER
  Company Number: AR-PFIZER INC-202400290706

PATIENT
  Age: 12 Year
  Sex: Male

DRUGS (1)
  1. GENOTROPIN [Suspect]
     Active Substance: SOMATROPIN
     Indication: Short stature
     Dosage: 1.5 MG, 6 TIMES PER WEEK
     Dates: start: 20160720

REACTIONS (4)
  - Device leakage [Unknown]
  - Device information output issue [Unknown]
  - Drug dose omission by device [Unknown]
  - Wrong technique in device usage process [Unknown]

NARRATIVE: CASE EVENT DATE: 20241001
